FAERS Safety Report 17742615 (Version 1)
Quarter: 2020Q2

REPORT INFORMATION
  Report Type: Spontaneous
  Country: DE (occurrence: DE)
  Receive Date: 20200504
  Receipt Date: 20200504
  Transmission Date: 20200714
  Serious: Yes (Other)
  Sender: FDA-Public Use
  Company Number: DE-MYLANLABS-2020M1043046

PATIENT
  Age: 30 Year
  Sex: Female

DRUGS (1)
  1. ZOLMITRIPTAN. [Suspect]
     Active Substance: ZOLMITRIPTAN
     Indication: MIGRAINE
     Dosage: 2.5 MILLIGRAM
     Route: 065

REACTIONS (3)
  - Electrocardiogram QT prolonged [Unknown]
  - Presyncope [Unknown]
  - Palpitations [Unknown]
